FAERS Safety Report 10694984 (Version 1)
Quarter: 2015Q1

REPORT INFORMATION
  Report Type: Spontaneous
  Country: US (occurrence: US)
  Receive Date: 20150107
  Receipt Date: 20150107
  Transmission Date: 20150721
  Serious: Yes (Life-Threatening, Other)
  Sender: FDA-Public Use
  Company Number: US-UNITED THERAPEUTICS-UNT-2014-012966

PATIENT
  Sex: Male

DRUGS (1)
  1. REMODULIN [Suspect]
     Active Substance: TREPROSTINIL
     Indication: PULMONARY ARTERIAL HYPERTENSION
     Dosage: 0.044 ?G/KG, CONTINUING
     Route: 041
     Dates: start: 201412

REACTIONS (2)
  - Seizure [Unknown]
  - Hypotension [Unknown]

NARRATIVE: CASE EVENT DATE: 201412
